FAERS Safety Report 16240544 (Version 1)
Quarter: 2019Q2

REPORT INFORMATION
  Report Type: Spontaneous
  Country: HU (occurrence: HU)
  Receive Date: 20190425
  Receipt Date: 20190425
  Transmission Date: 20190711
  Serious: Yes (Life-Threatening)
  Sender: FDA-Public Use
  Company Number: HU-MYLANLABS-2019M1037779

PATIENT
  Sex: Male

DRUGS (2)
  1. AGOMELATINE [Suspect]
     Active Substance: AGOMELATINE
     Indication: SLEEP DISORDER
     Dosage: UNK
     Route: 065
  2. ALPRAZOLAM. [Suspect]
     Active Substance: ALPRAZOLAM
     Indication: SLEEP DISORDER
     Dosage: UNK
     Route: 065

REACTIONS (10)
  - Adjustment disorder [Recovering/Resolving]
  - Apathy [Unknown]
  - Psychomotor skills impaired [Unknown]
  - Psychiatric symptom [Unknown]
  - Anger [Recovering/Resolving]
  - Appetite disorder [Unknown]
  - Suicidal ideation [Unknown]
  - Tension [Unknown]
  - Affective disorder [Recovering/Resolving]
  - Sleep disorder [Recovering/Resolving]
